FAERS Safety Report 19413838 (Version 1)
Quarter: 2021Q2

REPORT INFORMATION
  Report Type: Other
  Country: US (occurrence: US)
  Receive Date: 20210615
  Receipt Date: 20210615
  Transmission Date: 20210717
  Serious: Yes (Other)
  Sender: FDA-Public Use
  Company Number: US-ROCHE-2296073

PATIENT
  Sex: Female

DRUGS (2)
  1. PULMOZYME [Suspect]
     Active Substance: DORNASE ALFA
     Indication: NEUROMUSCULAR SCOLIOSIS
  2. PULMOZYME [Suspect]
     Active Substance: DORNASE ALFA
     Indication: SPINAL MUSCULAR ATROPHY
     Dosage: NEBULIZE THE CONTENTS OF 1 VIAL(S) TWICE A DAY
     Route: 065

REACTIONS (2)
  - Off label use [Unknown]
  - Upper limb fracture [Unknown]
